FAERS Safety Report 17346717 (Version 2)
Quarter: 2021Q3

REPORT INFORMATION
  Report Type: Spontaneous
  Country: CH (occurrence: CH)
  Receive Date: 20200130
  Receipt Date: 20210816
  Transmission Date: 20211014
  Serious: Yes (Death)
  Sender: FDA-Public Use
  Company Number: NVSC2020CH021829

PATIENT
  Age: 79 Year
  Sex: Male

DRUGS (7)
  1. KYMRIAH [Suspect]
     Active Substance: TISAGENLECLEUCEL
     Indication: DIFFUSE LARGE B-CELL LYMPHOMA STAGE IV
     Dosage: UNK UKN
     Route: 041
     Dates: start: 20191024, end: 20191024
  2. TOCILIZUMAB. [Concomitant]
     Active Substance: TOCILIZUMAB
     Dosage: 600 MG, QD
     Route: 042
     Dates: start: 20191202, end: 20191204
  3. FORTECORTIN [Concomitant]
     Active Substance: DEXAMETHASONE
     Indication: LIVER DISORDER
     Dosage: 20 MG
     Route: 042
     Dates: start: 20191120
  4. TOCILIZUMAB. [Concomitant]
     Active Substance: TOCILIZUMAB
     Indication: CYTOKINE RELEASE SYNDROME
     Dosage: 600 MG
     Route: 042
     Dates: start: 20191030, end: 20191101
  5. TOCILIZUMAB. [Concomitant]
     Active Substance: TOCILIZUMAB
     Dosage: 600 MG, QD
     Route: 042
     Dates: start: 20191118
  6. DEXAMETHASONE. [Concomitant]
     Active Substance: DEXAMETHASONE
     Indication: NEUROTOXICITY
     Dosage: 8 MG, TID
     Route: 042
     Dates: start: 20191118
  7. DEXAMETHASONE. [Concomitant]
     Active Substance: DEXAMETHASONE
     Dosage: 4 MG, BID
     Route: 042
     Dates: start: 20191205, end: 20191207

REACTIONS (1)
  - Haemophagocytic lymphohistiocytosis [Fatal]

NARRATIVE: CASE EVENT DATE: 201910
